FAERS Safety Report 19407782 (Version 1)
Quarter: 2021Q2

REPORT INFORMATION
  Report Type: Spontaneous
  Country: FR (occurrence: FR)
  Receive Date: 20210612
  Receipt Date: 20210612
  Transmission Date: 20210717
  Serious: Yes (Other)
  Sender: FDA-Public Use
  Company Number: FR-MACLEODS PHARMACEUTICALS US LTD-MAC2021031423

PATIENT

DRUGS (6)
  1. NEORAL [Concomitant]
     Active Substance: CYCLOSPORINE
     Indication: IMMUNOSUPPRESSANT DRUG THERAPY
     Dosage: 10 MILLIGRAM/KILOGRAM, QD
     Route: 065
  2. MIDAZOLAM. [Concomitant]
     Active Substance: MIDAZOLAM
     Indication: SEDATIVE THERAPY
     Dosage: UNK, STOPPED ON POD 3
     Route: 065
  3. ACYCLOVIR. [Suspect]
     Active Substance: ACYCLOVIR
     Indication: PROPHYLAXIS
     Dosage: UNK UNK, QD, WAS STARTED ON POD 3 AT A DOSAGE OF 250 MG/M2 BODY SURFACE
     Route: 042
  4. FLUCONAZOLE. [Concomitant]
     Active Substance: FLUCONAZOLE
     Indication: PRODUCT USED FOR UNKNOWN INDICATION
     Dosage: 3 MILLIGRAM/KILOGRAM, QD WAS INITIATED ON THE DAY OF SURGERY
     Route: 065
  5. FENTANYL. [Concomitant]
     Active Substance: FENTANYL
     Indication: SEDATIVE THERAPY
     Dosage: UNK, STOPPED ON POD 3
     Route: 065
  6. ACYCLOVIR. [Suspect]
     Active Substance: ACYCLOVIR
     Indication: HERPES SIMPLEX
     Dosage: UNK UNK, TID, INCREASED TO 250 MG/M^2 BODY SURFACE THRICE A DAY ON POD 5
     Route: 042

REACTIONS (7)
  - Neurotoxicity [Recovered/Resolved]
  - Coma [Recovered/Resolved]
  - Cerebral disorder [Recovered/Resolved]
  - Toxic encephalopathy [Recovered/Resolved]
  - Agitation [Recovered/Resolved]
  - Eye movement disorder [Recovered/Resolved]
  - Choreoathetosis [Recovered/Resolved]
